FAERS Safety Report 23664938 (Version 1)
Quarter: 2024Q1

REPORT INFORMATION
  Report Type: Spontaneous
  Country: US (occurrence: US)
  Receive Date: 20240322
  Receipt Date: 20240322
  Transmission Date: 20240410
  Serious: Yes (Other)
  Sender: FDA-Public Use
  Company Number: US-NOVOPROD-1193391

PATIENT
  Age: 66 Year
  Sex: Female

DRUGS (3)
  1. NOVOLOG [Suspect]
     Active Substance: INSULIN ASPART
     Indication: Type 1 diabetes mellitus
     Dosage: UNK
     Route: 058
     Dates: end: 20240214
  2. NOVOLOG [Suspect]
     Active Substance: INSULIN ASPART
     Dosage: UNK
     Route: 058
     Dates: start: 2024
  3. LANTUS [Concomitant]
     Active Substance: INSULIN GLARGINE
     Indication: Type 1 diabetes mellitus
     Dosage: UNK
     Route: 058

REACTIONS (4)
  - Depression suicidal [Unknown]
  - COVID-19 [Recovered/Resolved]
  - Sinus disorder [Not Recovered/Not Resolved]
  - Blood glucose increased [Unknown]

NARRATIVE: CASE EVENT DATE: 20220101
